FAERS Safety Report 4312894-9 (Version None)
Quarter: 2004Q1

REPORT INFORMATION
  Report Type: 
  Country: None (occurrence: None)
  Receive Date: 20040302
  Receipt Date: 20031028
  Transmission Date: 20041129
  Serious: No
  Sender: FDA-Public Use
  Company Number: WAES 0310USA03110

PATIENT
  Age: 44 Year
  Sex: Female

DRUGS (2)
  1. CANCIDAS [Suspect]
     Dosage: 50 MG/DAILY/IV
     Route: 042
     Dates: start: 20031025
  2. MYCOPHENOLATE MOFETIL [Concomitant]

REACTIONS (3)
  - ASPARTATE AMINOTRANSFERASE INCREASED [None]
  - BLOOD ALKALINE PHOSPHATASE INCREASED [None]
  - BLOOD BILIRUBIN INCREASED [None]
